FAERS Safety Report 4698174-0 (Version None)
Quarter: 2005Q2

REPORT INFORMATION
  Report Type: 
  Country: None (occurrence: None)
  Receive Date: 20050623
  Receipt Date: 20050615
  Transmission Date: 20051028
  Serious: Yes (Disabling, Other)
  Sender: FDA-Public Use
  Company Number: 04-05-0739

PATIENT
  Age: 48 Year
  Sex: Male

DRUGS (5)
  1. BECLOMETHASONE DIPROPIONATE [Suspect]
     Indication: SINUSITIS
     Route: 065
  2. NASACORT [Suspect]
     Indication: SINUSITIS
     Route: 065
  3. DEXA-RHINASPRAY [Suspect]
     Indication: SINUSITIS
     Route: 065
  4. LOSARTAN [Concomitant]
     Route: 065
  5. AMITRIPTYLINE HCL [Concomitant]
     Route: 065

REACTIONS (6)
  - ABDOMINAL PAIN [None]
  - ARTHRALGIA [None]
  - DISABILITY [None]
  - GROIN PAIN [None]
  - OSTEONECROSIS [None]
  - SLEEP DISORDER [None]
